FAERS Safety Report 6815624-1 (Version None)
Quarter: 2010Q3

REPORT INFORMATION
  Report Type: 
  Country: None (occurrence: None)
  Receive Date: 20100702
  Receipt Date: 20100622
  Transmission Date: 20110219
  Serious: Yes (Hospitalization, Other)
  Sender: FDA-Public Use
  Company Number: IE-ELI_LILLY_AND_COMPANY-IE201006006313

PATIENT
  Age: 50 Year
  Sex: Female

DRUGS (1)
  1. CIALIS [Suspect]
     Indication: PULMONARY FIBROSIS
     Dosage: 10 MG, DAILY (1/D)

REACTIONS (2)
  - NEOPLASM MALIGNANT [None]
  - OFF LABEL USE [None]
